FAERS Safety Report 8692177 (Version 2)
Quarter: 2012Q4

REPORT INFORMATION
  Report Type: 
  Country: GB (occurrence: GB)
  Receive Date: 20120730
  Receipt Date: 20120905
  Transmission Date: 20130627
  Serious: Yes (Other)
  Sender: FDA-Public Use
  Company Number: GB-ASTRAZENECA-2012SE51021

PATIENT
  Age: 11 Year
  Sex: Male
  Weight: 30 kg

DRUGS (18)
  1. SYMBICORT [Suspect]
     Indication: ASTHMA
     Dosage: UNKNOWN STRENGTH, 1 DF THREE TIMES A DAY
     Route: 055
     Dates: start: 201010
  2. SYMBICORT [Interacting]
     Indication: CYSTIC FIBROSIS
     Dosage: UNKNOWN STRENGTH, 1 DF THREE TIMES A DAY
     Route: 055
     Dates: start: 201010
  3. SYMBICORT [Interacting]
     Indication: ASTHMA
     Dosage: UNKNOWN STRENGTH AND FREQUENCY
     Route: 055
  4. SYMBICORT [Interacting]
     Indication: CYSTIC FIBROSIS
     Dosage: UNKNOWN STRENGTH AND FREQUENCY
     Route: 055
  5. SPORANOX [Interacting]
     Indication: BRONCHOPULMONARY ASPERGILLOSIS ALLERGIC
     Route: 048
     Dates: start: 201202, end: 20120628
  6. AZITHROMYCIN [Concomitant]
     Indication: CYSTIC FIBROSIS
     Route: 048
     Dates: start: 20090319
  7. AZITHROMYCIN [Concomitant]
     Indication: ANTIBIOTIC PROPHYLAXIS
     Route: 048
     Dates: start: 20090319
  8. CIPROFLOXACIN [Concomitant]
     Indication: PSEUDOMONAS INFECTION
     Route: 048
     Dates: start: 20120627, end: 20120814
  9. CREON [Concomitant]
     Indication: CYSTIC FIBROSIS
     Route: 048
     Dates: start: 2007
  10. CREON [Concomitant]
     Indication: PANCREATIC INSUFFICIENCY
     Route: 048
     Dates: start: 2007
  11. DORNASE ALFA [Concomitant]
     Indication: CYSTIC FIBROSIS
     Route: 055
     Dates: start: 2009
  12. MOVICOL [Concomitant]
     Indication: CONSTIPATION
     Dosage: AS NECESSARY
     Dates: start: 201207
  13. OMEPRAZOLE [Concomitant]
     Indication: GASTROOESOPHAGEAL REFLUX DISEASE
     Route: 048
  14. PHYTOMENADIONE [Concomitant]
     Route: 048
     Dates: start: 20080508
  15. PROMIXIN [Concomitant]
     Indication: PSEUDOMONAS INFECTION
     Route: 055
     Dates: start: 20120627
  16. SALBUTAMOL [Concomitant]
     Indication: CYSTIC FIBROSIS
     Route: 055
     Dates: start: 20100520
  17. VITAMIN A AND D CONCENTRATE [Concomitant]
     Indication: CYSTIC FIBROSIS
     Route: 048
     Dates: start: 20110921
  18. VITAMIN E [Concomitant]
     Indication: CYSTIC FIBROSIS
     Route: 048
     Dates: start: 20110921

REACTIONS (6)
  - Drug interaction [Unknown]
  - Dyspnoea [Not Recovered/Not Resolved]
  - Fatigue [Not Recovered/Not Resolved]
  - Sinusitis [Unknown]
  - Blood cortisol decreased [Not Recovered/Not Resolved]
  - Adrenal suppression [Not Recovered/Not Resolved]
